FAERS Safety Report 4380445-9 (Version None)
Quarter: 2004Q2

REPORT INFORMATION
  Report Type: 
  Country: None (occurrence: None)
  Receive Date: 20040614
  Receipt Date: 20040531
  Transmission Date: 20050107
  Serious: Yes (Hospitalization, Other)
  Sender: FDA-Public Use
  Company Number: 2004216821AU

PATIENT
  Age: 23 Year
  Sex: Female

DRUGS (1)
  1. DEPO-PROVERA [Suspect]
     Indication: CONTRACEPTION
     Dosage: 1ST AND LAST INJECTION
     Dates: start: 20031201, end: 20031201

REACTIONS (5)
  - ANXIETY [None]
  - DEPRESSION [None]
  - MENORRHAGIA [None]
  - SUICIDAL IDEATION [None]
  - WEIGHT DECREASED [None]
